FAERS Safety Report 5411350-4 (Version None)
Quarter: 2007Q3

REPORT INFORMATION
  Report Type: 
  Country: None (occurrence: None)
  Receive Date: 20070810
  Receipt Date: 20070806
  Transmission Date: 20080115
  Serious: Yes (Hospitalization, Disabling, Other)
  Sender: FDA-Public Use
  Company Number: US-MERCK-0605USA03246

PATIENT
  Age: 83 Year
  Sex: Female
  Weight: 68 kg

DRUGS (1)
  1. FOSAMAX [Suspect]
     Indication: OSTEOPOROSIS
     Route: 048
     Dates: start: 20010101, end: 20060101

REACTIONS (6)
  - ABSCESS ORAL [None]
  - GASTROINTESTINAL DISORDER [None]
  - OSTEONECROSIS [None]
  - PRURITUS [None]
  - PSEUDOMEMBRANOUS COLITIS [None]
  - RASH [None]
